FAERS Safety Report 5821290-4 (Version None)
Quarter: 2008Q3

REPORT INFORMATION
  Report Type: 
  Country: None (occurrence: None)
  Receive Date: 20080721
  Receipt Date: 20080708
  Transmission Date: 20090109
  Serious: Yes (Hospitalization)
  Sender: FDA-Public Use
  Company Number: 2008BI006197

PATIENT
  Age: 46 Year
  Sex: Female
  Weight: 53.978 kg

DRUGS (13)
  1. AVONEX [Suspect]
     Indication: MULTIPLE SCLEROSIS
     Dosage: 30 UG;QW;IM
     Route: 030
     Dates: start: 20060203
  2. AMBIEN [Concomitant]
  3. CELEXA [Concomitant]
  4. CLEOCIN [Concomitant]
  5. HYDROCHLOROTHIAZIDE [Concomitant]
  6. LORTAB [Concomitant]
  7. LOTREL [Concomitant]
  8. METHADONE HCL [Concomitant]
  9. MOBIC [Concomitant]
  10. PRILOSEC [Concomitant]
  11. PROVIGIL [Concomitant]
  12. TRANXENE [Concomitant]
  13. TAMOXIFEN CITRATE [Concomitant]

REACTIONS (8)
  - BREAST CANCER STAGE I [None]
  - CONTUSION [None]
  - GASTROINTESTINAL TOXICITY [None]
  - HAEMATOMA [None]
  - NEUTROPENIA [None]
  - OESTROGEN RECEPTOR ASSAY POSITIVE [None]
  - PROGESTERONE RECEPTOR ASSAY POSITIVE [None]
  - STOMATITIS [None]
